FAERS Safety Report 10171485 (Version 2)
Quarter: 2014Q2

REPORT INFORMATION
  Report Type: Report from Study
  Country: US (occurrence: US)
  Receive Date: 20140514
  Receipt Date: 20140605
  Transmission Date: 20141212
  Serious: Yes (Hospitalization, Other)
  Sender: FDA-Public Use
  Company Number: US-ABBVIE-14P-163-1235239-00

PATIENT
  Age: 38 Year
  Sex: Female

DRUGS (13)
  1. LUPRON DEPOT [Suspect]
     Indication: PELVIC PAIN
     Dates: start: 201402
  2. LUPRON DEPOT [Suspect]
     Indication: VAGINAL HAEMORRHAGE
  3. LYRICA [Concomitant]
     Indication: PRODUCT USED FOR UNKNOWN INDICATION
  4. CYMBALTA [Concomitant]
     Indication: PRODUCT USED FOR UNKNOWN INDICATION
  5. XANAX [Concomitant]
     Indication: PRODUCT USED FOR UNKNOWN INDICATION
  6. FLEXERIL [Concomitant]
     Indication: PRODUCT USED FOR UNKNOWN INDICATION
  7. REMERON [Concomitant]
     Indication: PRODUCT USED FOR UNKNOWN INDICATION
  8. ROBAXIN [Concomitant]
     Indication: PRODUCT USED FOR UNKNOWN INDICATION
  9. ELMIRON [Concomitant]
     Indication: PRODUCT USED FOR UNKNOWN INDICATION
  10. PROPRANOLOL [Concomitant]
     Indication: PRODUCT USED FOR UNKNOWN INDICATION
  11. VITAMIN C [Concomitant]
     Indication: PRODUCT USED FOR UNKNOWN INDICATION
  12. HYDROCHLOROTHIAZIDE [Concomitant]
     Indication: PRODUCT USED FOR UNKNOWN INDICATION
  13. XARELTO [Concomitant]
     Indication: PRODUCT USED FOR UNKNOWN INDICATION

REACTIONS (5)
  - Intestinal perforation [Recovering/Resolving]
  - Osteoarthritis [Not Recovered/Not Resolved]
  - Abdominal adhesions [Recovering/Resolving]
  - Localised infection [Recovering/Resolving]
  - Arthralgia [Not Recovered/Not Resolved]
